FAERS Safety Report 20574887 (Version 4)
Quarter: 2024Q2

REPORT INFORMATION
  Report Type: Report from Study
  Country: US (occurrence: US)
  Receive Date: 20220310
  Receipt Date: 20240619
  Transmission Date: 20240715
  Serious: Yes (Other)
  Sender: FDA-Public Use
  Company Number: US-ABBVIE-21K-163-4152068-00

PATIENT
  Age: 71 Year
  Sex: Female

DRUGS (2)
  1. IMBRUVICA [Suspect]
     Active Substance: IBRUTINIB
     Indication: Chronic lymphocytic leukaemia
     Route: 048
     Dates: start: 20150904
  2. ELIQUIS [Suspect]
     Active Substance: APIXABAN
     Indication: Product used for unknown indication
     Route: 065

REACTIONS (13)
  - Multiple sclerosis [Unknown]
  - Thrombosis [Recovered/Resolved]
  - Limb injury [Unknown]
  - Depressed mood [Unknown]
  - Arthritis [Unknown]
  - Hypertonic bladder [Unknown]
  - Blood pressure abnormal [Unknown]
  - Alopecia [Unknown]
  - Epistaxis [Unknown]
  - Fall [Unknown]
  - Fear [Unknown]
  - Skin abrasion [Unknown]
  - Wound haemorrhage [Unknown]

NARRATIVE: CASE EVENT DATE: 20220201
